FAERS Safety Report 11384238 (Version 1)
Quarter: 2015Q3

REPORT INFORMATION
  Report Type: Spontaneous
  Country: US (occurrence: US)
  Receive Date: 20150811
  Receipt Date: 20150811
  Transmission Date: 20151125
  Serious: Yes (Other)
  Sender: FDA-Public Use
  Company Number: US-ELI_LILLY_AND_COMPANY-US201009003307

PATIENT
  Age: 54 Year
  Sex: Male

DRUGS (1)
  1. CIALIS [Suspect]
     Active Substance: TADALAFIL
     Indication: ERECTILE DYSFUNCTION
     Dosage: 20 MG, UNK
     Dates: start: 20100831

REACTIONS (15)
  - Ejaculation disorder [Not Recovered/Not Resolved]
  - Semen volume increased [Not Recovered/Not Resolved]
  - Penis injury [Unknown]
  - Penile haemorrhage [Unknown]
  - Overdose [Unknown]
  - Penile pain [Unknown]
  - Penis disorder [Unknown]
  - Genital hypoaesthesia [Unknown]
  - Erection increased [Not Recovered/Not Resolved]
  - Penile discharge [Unknown]
  - Feeling cold [Unknown]
  - Penile discharge [Unknown]
  - Urinary incontinence [Not Recovered/Not Resolved]
  - Painful erection [Unknown]
  - Memory impairment [Unknown]

NARRATIVE: CASE EVENT DATE: 20100816
